FAERS Safety Report 7256712-8 (Version None)
Quarter: 2011Q1

REPORT INFORMATION
  Report Type: 
  Country: None (occurrence: None)
  Receive Date: 20110129
  Receipt Date: 20100708
  Transmission Date: 20110831
  Serious: No
  Sender: FDA-Public Use
  Company Number: US-ABBOTT-10P-163-0656792-00

PATIENT
  Sex: Female
  Weight: 98.972 kg

DRUGS (1)
  1. HUMIRA [Suspect]
     Indication: CROHN'S DISEASE
     Route: 058
     Dates: start: 20100624

REACTIONS (7)
  - MIGRAINE [None]
  - HYPOTENSION [None]
  - ABASIA [None]
  - DIZZINESS [None]
  - BALANCE DISORDER [None]
  - FALL [None]
  - ARTHRALGIA [None]
